FAERS Safety Report 14802733 (Version 1)
Quarter: 2018Q2

REPORT INFORMATION
  Report Type: Spontaneous
  Country: JP (occurrence: JP)
  Receive Date: 20180424
  Receipt Date: 20180424
  Transmission Date: 20180711
  Serious: Yes (Hospitalization, Other)
  Sender: FDA-Public Use
  Company Number: JP-PFIZER INC-2018157023

PATIENT
  Age: 7 Decade
  Sex: Female
  Weight: 61 kg

DRUGS (2)
  1. PREMARIN [Suspect]
     Active Substance: ESTROGENS, CONJUGATED
     Indication: HORMONE REPLACEMENT THERAPY
     Dosage: 0.625 MG, 1X/DAY
     Route: 048
     Dates: start: 1996
  2. CALONAL [Concomitant]
     Active Substance: ACETAMINOPHEN
     Indication: SCIATICA
     Dosage: UNK
     Route: 048

REACTIONS (10)
  - Deep vein thrombosis [Unknown]
  - Abdominal pain upper [Unknown]
  - Cholelithiasis [Unknown]
  - Pulmonary embolism [Recovering/Resolving]
  - Bile duct stone [Unknown]
  - Embolism [Recovering/Resolving]
  - Pneumonia [Unknown]
  - Pleurisy [Unknown]
  - Pneumonia mycoplasmal [Unknown]
  - Pulmonary artery thrombosis [Unknown]
